FAERS Safety Report 5443066-2 (Version None)
Quarter: 2007Q3

REPORT INFORMATION
  Report Type: 
  Country: None (occurrence: None)
  Receive Date: 20070905
  Receipt Date: 20070829
  Transmission Date: 20080115
  Serious: Yes (Hospitalization)
  Sender: FDA-Public Use
  Company Number: PHBS2007JP14383

PATIENT
  Age: 58 Year
  Sex: Female

DRUGS (5)
  1. TOFRANIL [Suspect]
     Dosage: 20 MG/D
     Route: 048
     Dates: start: 20070801
  2. TOFRANIL [Suspect]
     Dosage: 30 MG/D
     Route: 048
     Dates: start: 20070801, end: 20070801
  3. AMOXAN [Concomitant]
     Dosage: 75 MG/D
     Route: 048
  4. AMOXAN [Concomitant]
     Dosage: 50 MG/D
     Route: 048
  5. SEPAZON [Concomitant]
     Route: 048

REACTIONS (4)
  - BLOOD GLUCOSE INCREASED [None]
  - HYPERGLYCAEMIA [None]
  - LOSS OF CONSCIOUSNESS [None]
  - TACHYCARDIA [None]
